FAERS Safety Report 23880408 (Version 1)
Quarter: 2024Q2

REPORT INFORMATION
  Report Type: Spontaneous
  Country: GB (occurrence: GB)
  Receive Date: 20240521
  Receipt Date: 20240521
  Transmission Date: 20240715
  Serious: Yes (Life-Threatening, Hospitalization, Other)
  Sender: FDA-Public Use
  Company Number: None

PATIENT
  Age: 72 Year
  Sex: Male

DRUGS (9)
  1. CLOPIDOGREL BISULFATE [Suspect]
     Active Substance: CLOPIDOGREL BISULFATE
     Dosage: 75 MG, QD
  2. WARFARIN SODIUM [Suspect]
     Active Substance: WARFARIN SODIUM
     Indication: Anticoagulant therapy
     Dosage: 1 MG, TAKE AS PRESCRIBED IN ANTICOAGULANT TREATMENT BOOK 56 TABLET -SWAPPED TO EDOXABAN
  3. VITAMIN B COMPOUND [NICOTINAMIDE;RIBOFLAVIN;THIAMINE HYDROCHLORIDE] [Concomitant]
     Indication: Vitamin supplementation
     Dosage: 1 DF, QD
  4. INDAPAMIDE [Concomitant]
     Active Substance: INDAPAMIDE
     Dosage: EACH MORNING
  5. THIAMINE [Concomitant]
     Active Substance: THIAMINE
     Dosage: 100 MG, QD
  6. DOXAZOSIN [Concomitant]
     Active Substance: DOXAZOSIN MESYLATE
     Dosage: 8 MG, QD
  7. ATORVASTATIN [Concomitant]
     Active Substance: ATORVASTATIN
     Dosage: AT NIGHT
  8. LANSOPRAZOLE [Concomitant]
     Active Substance: LANSOPRAZOLE
     Dosage: EACH MORNING
  9. ATENOLOL [Concomitant]
     Active Substance: ATENOLOL
     Dosage: EACH MORNING - CURRENTLY HELD

REACTIONS (3)
  - Lethargy [Unknown]
  - Lower gastrointestinal haemorrhage [Recovered/Resolved]
  - Rectal haemorrhage [Unknown]
